FAERS Safety Report 25903265 (Version 1)
Quarter: 2025Q4

REPORT INFORMATION
  Report Type: Report from Study
  Country: CN (occurrence: CN)
  Receive Date: 20251009
  Receipt Date: 20251009
  Transmission Date: 20260117
  Serious: Yes (Other)
  Sender: VERITY PHARMACEUTICALS INC.
  Company Number: CN-VER-202500046

PATIENT
  Sex: Female

DRUGS (5)
  1. TRIPTORELIN [Suspect]
     Active Substance: TRIPTORELIN
     Indication: Low response to ovarian stimulation
     Dosage: POWDER AND SOLVENT FOR SOLUTION FOR INJECTION
     Route: 065
  2. CRINONE [Suspect]
     Active Substance: PROGESTERONE
     Indication: Low response to ovarian stimulation
     Route: 065
  3. ESTRADIOL VALERATE [Suspect]
     Active Substance: ESTRADIOL VALERATE
     Indication: Low response to ovarian stimulation
     Route: 065
  4. DUPHASTON [Suspect]
     Active Substance: DYDROGESTERONE
     Indication: Low response to ovarian stimulation
     Route: 065
  5. CETROTIDE [Suspect]
     Active Substance: CETRORELIX ACETATE
     Indication: Low response to ovarian stimulation
     Route: 058

REACTIONS (5)
  - Ectopic pregnancy [Unknown]
  - Neonatal disorder [Unknown]
  - Abortion spontaneous [Unknown]
  - Off label use [Unknown]
  - Pregnancy [Unknown]
